FAERS Safety Report 4969544-8 (Version None)
Quarter: 2006Q2

REPORT INFORMATION
  Report Type: 
  Country: None (occurrence: None)
  Receive Date: 20060406
  Receipt Date: 20060315
  Transmission Date: 20061013
  Serious: Yes (Disabling, Other)
  Sender: FDA-Public Use
  Company Number: US200603004299

PATIENT
  Age: 76 Year
  Sex: Female

DRUGS (3)
  1. HUMULIN R [Suspect]
     Indication: DIABETES MELLITUS
     Dates: start: 19800101
  2. HUMULIN N [Suspect]
     Indication: DIABETES MELLITUS
     Dates: start: 19800101
  3. PSYLLIUM (PSYLLIUM) [Concomitant]

REACTIONS (5)
  - AORTIC VALVE STENOSIS [None]
  - BEDRIDDEN [None]
  - CEREBROVASCULAR ACCIDENT [None]
  - LIMB INJURY [None]
  - OESOPHAGEAL DISORDER [None]
